FAERS Safety Report 9106828 (Version 1)
Quarter: 2013Q1

REPORT INFORMATION
  Report Type: Spontaneous
  Country: US (occurrence: US)
  Receive Date: 20130221
  Receipt Date: 20130221
  Transmission Date: 20140127
  Serious: No
  Sender: FDA-Public Use
  Company Number: US-009507513-1302USA009920

PATIENT
  Sex: Male

DRUGS (2)
  1. CORICIDIN COUGH + CHEST MAXIMUM [Suspect]
     Indication: COUGH
     Dosage: UNK, UNKNOWN
     Route: 048
  2. CORICIDIN COUGH + CHEST MAXIMUM [Suspect]
     Indication: RESPIRATORY TRACT CONGESTION

REACTIONS (1)
  - Chromaturia [Unknown]
